FAERS Safety Report 9255662 (Version 2)
Quarter: 2013Q2

REPORT INFORMATION
  Report Type: Spontaneous
  Country: US (occurrence: US)
  Receive Date: 20130425
  Receipt Date: 20130503
  Transmission Date: 20140414
  Serious: Yes (Other)
  Sender: FDA-Public Use
  Company Number: US-PFIZER INC-2013128382

PATIENT
  Age: 14 Month
  Sex: Male
  Weight: 9.98 kg

DRUGS (2)
  1. IBUPROFEN [Suspect]
     Indication: TOOTHACHE
     Dosage: 1.2- 1.875 ML
     Route: 048
     Dates: start: 20121101, end: 20130412
  2. TYLENOL ARTHRITIS [Suspect]
     Indication: TOOTHACHE
     Dosage: 1.2- 1.875 ML
     Route: 048
     Dates: start: 20121101, end: 20130412

REACTIONS (4)
  - Eczema [Unknown]
  - Eczema weeping [None]
  - Purulence [None]
  - Product quality issue [None]
